FAERS Safety Report 10647321 (Version 2)
Quarter: 2015Q1

REPORT INFORMATION
  Report Type: Report from Study
  Country: DE (occurrence: DE)
  Receive Date: 20141211
  Receipt Date: 20150306
  Transmission Date: 20150720
  Serious: Yes (Hospitalization)
  Sender: FDA-Public Use
  Company Number: DE-009507513-1412DEU005776

PATIENT
  Age: 64 Year
  Sex: Female
  Weight: 84 kg

DRUGS (5)
  1. COPEGUS [Suspect]
     Active Substance: RIBAVIRIN
     Dosage: (TOTAL DAILY DOSE: 800 MG). FREQUENCY: BID
     Route: 048
     Dates: start: 20130819, end: 20130922
  2. COPEGUS [Suspect]
     Active Substance: RIBAVIRIN
     Indication: CHRONIC HEPATITIS C
     Dosage: (TOTAL DAILY DOSE: 1000 MG). FREQUENCY: BID
     Route: 048
     Dates: start: 20130729, end: 20130818
  3. PEGASYS [Suspect]
     Active Substance: PEGINTERFERON ALFA-2A
     Indication: CHRONIC HEPATITIS C
     Dosage: 180 MICROGRAM, QW
     Route: 058
     Dates: start: 20130729
  4. COPEGUS [Suspect]
     Active Substance: RIBAVIRIN
     Dosage: (TOTAL DAILY DOSE: 600 MG). FREQUENCY: BID
     Route: 048
     Dates: start: 20130923
  5. BOCEPREVIR [Suspect]
     Active Substance: BOCEPREVIR
     Indication: CHRONIC HEPATITIS C
     Dosage: STRENGTH: 200 MG. (TOTAL DAILY DOSE: 2400 MG). FREQUENCY: TID
     Route: 048
     Dates: start: 20130826

REACTIONS (2)
  - Pancytopenia [Recovered/Resolved]
  - Dyspnoea [Recovered/Resolved]

NARRATIVE: CASE EVENT DATE: 20131113
